FAERS Safety Report 11748995 (Version 9)
Quarter: 2017Q3

REPORT INFORMATION
  Report Type: Spontaneous
  Country: US (occurrence: US)
  Receive Date: 20151118
  Receipt Date: 20170913
  Transmission Date: 20171127
  Serious: Yes (Other)
  Sender: FDA-Public Use
  Company Number: PHEH2015US023840

PATIENT
  Age: 26 Year
  Sex: Female
  Weight: 56.24 kg

DRUGS (4)
  1. ONDANSETRONE TEVA [Suspect]
     Active Substance: ONDANSETRON HYDROCHLORIDE
     Indication: VOMITING IN PREGNANCY
     Dosage: 8 MG
     Route: 065
  2. ONDANSETRON HYDROCHLORIDE. [Suspect]
     Active Substance: ONDANSETRON HYDROCHLORIDE
     Indication: PRODUCT USED FOR UNKNOWN INDICATION
     Dosage: UNK
     Route: 065
  3. ZOFRAN [Suspect]
     Active Substance: ONDANSETRON HYDROCHLORIDE
     Indication: VOMITING IN PREGNANCY
     Dosage: 8 MG, PRN
     Route: 048
  4. ONDANSETRON DR REDDY [Suspect]
     Active Substance: ONDANSETRON
     Indication: VOMITING IN PREGNANCY
     Dosage: 8 MG, PRN
     Route: 065
     Dates: start: 20110807, end: 20111011

REACTIONS (14)
  - Gestational diabetes [Unknown]
  - Emotional distress [Unknown]
  - Pain [Unknown]
  - Post cholecystectomy syndrome [Unknown]
  - Faeces pale [Unknown]
  - Gallbladder polyp [Unknown]
  - Anxiety [Unknown]
  - Premature delivery [Unknown]
  - Gastrooesophageal reflux disease [Unknown]
  - Product use in unapproved indication [Unknown]
  - Acute sinusitis [Unknown]
  - Maternal exposure during pregnancy [Unknown]
  - Ovarian cyst [Unknown]
  - Dysuria [Unknown]

NARRATIVE: CASE EVENT DATE: 20120217
